FAERS Safety Report 6976720-1 (Version None)
Quarter: 2010Q3

REPORT INFORMATION
  Report Type: 
  Country: None (occurrence: None)
  Receive Date: 20100910
  Receipt Date: 20100827
  Transmission Date: 20110219
  Serious: Yes (Death, Other)
  Sender: FDA-Public Use
  Company Number: US-ELI_LILLY_AND_COMPANY-US201004002313

PATIENT
  Age: 81 Year
  Sex: Female

DRUGS (1)
  1. FORTEO [Suspect]
     Dosage: UNK, UNKNOWN

REACTIONS (5)
  - BACK INJURY [None]
  - BRAIN NEOPLASM [None]
  - CONVULSION [None]
  - DEATH [None]
  - FALL [None]
